FAERS Safety Report 6012187-8 (Version None)
Quarter: 2008Q4

REPORT INFORMATION
  Report Type: 
  Country: None (occurrence: None)
  Receive Date: 20081218
  Receipt Date: 20081210
  Transmission Date: 20090506
  Serious: Yes (Other)
  Sender: FDA-Public Use
  Company Number: US-ASTRAZENECA-2008AC03134

PATIENT
  Age: 38 Year
  Sex: Male

DRUGS (6)
  1. PROPOFOL [Suspect]
     Indication: INTRACRANIAL PRESSURE INCREASED
     Dosage: 75-125 UG/KG/MIN
     Route: 042
  2. DOPAMINE HCL [Suspect]
     Indication: CEREBRAL HYPOPERFUSION
     Dosage: 5-20 UG/KG/MIN
  3. PHENYLEPHRINE [Suspect]
     Indication: CEREBRAL HYPOPERFUSION
     Dosage: 0.5-1.75 UG/KG/MIN
  4. THIOPENTAL SODIUM [Concomitant]
     Indication: INTRACRANIAL PRESSURE INCREASED
  5. MANNITOL [Concomitant]
     Indication: CEREBRAL HYPOPERFUSION
     Route: 040
  6. SODIUM CHLORIDE [Concomitant]
     Indication: CEREBRAL HYPOPERFUSION
     Route: 040

REACTIONS (3)
  - ELECTROCARDIOGRAM ST SEGMENT ELEVATION [None]
  - PROPOFOL INFUSION SYNDROME [None]
  - TACHYARRHYTHMIA [None]
